FAERS Safety Report 9844953 (Version 1)
Quarter: 2014Q1

REPORT INFORMATION
  Report Type: Spontaneous
  Country: US (occurrence: None)
  Receive Date: 20140123
  Receipt Date: 20140123
  Transmission Date: 20141002
  Serious: Yes (Disabling)
  Sender: FDA-Public Use
  Company Number: None

PATIENT
  Age: 22 Year
  Sex: Male
  Weight: 72.58 kg

DRUGS (2)
  1. PROPECIA [Suspect]
     Indication: ALOPECIA
     Route: 048
     Dates: start: 20020701, end: 20130301
  2. PROPECIA [Suspect]
     Indication: PROPHYLAXIS
     Route: 048
     Dates: start: 20020701, end: 20130301

REACTIONS (11)
  - Cognitive disorder [None]
  - Activities of daily living impaired [None]
  - Quality of life decreased [None]
  - Fatigue [None]
  - Mental impairment [None]
  - Speech disorder [None]
  - Dysgraphia [None]
  - Amnesia [None]
  - Amnesia [None]
  - Social problem [None]
  - General physical health deterioration [None]
